FAERS Safety Report 5762981-3 (Version None)
Quarter: 2008Q2

REPORT INFORMATION
  Report Type: 
  Country: None (occurrence: None)
  Receive Date: 20080602
  Receipt Date: 20080324
  Transmission Date: 20081010
  Serious: No
  Sender: FDA-Public Use
  Company Number: PHEH2008US02654

PATIENT
  Age: 83 Year
  Sex: Male
  Weight: 107.9 kg

DRUGS (11)
  1. TEKTURNA [Suspect]
     Indication: HYPERTENSION
     Dosage: 150 MG, ORAL : 300 MG, QD, ORAL : 150 MG, QD, ORAL
     Route: 048
     Dates: start: 20080111, end: 20080131
  2. TEKTURNA [Suspect]
     Indication: HYPERTENSION
     Dosage: 150 MG, ORAL : 300 MG, QD, ORAL : 150 MG, QD, ORAL
     Route: 048
     Dates: start: 20080201, end: 20080215
  3. TEKTURNA [Suspect]
     Indication: HYPERTENSION
     Dosage: 150 MG, ORAL : 300 MG, QD, ORAL : 150 MG, QD, ORAL
     Route: 048
     Dates: start: 20080216
  4. ACTOS/USA/ (PIOGLITAZONE, PIOGLITAZONE HYDROCHLORIDE) [Concomitant]
  5. TRICOR [Concomitant]
  6. FLOMAX [Concomitant]
  7. ZETIA [Concomitant]
  8. AMBIEN [Concomitant]
  9. ZYRTEC [Concomitant]
  10. BYETTA [Concomitant]
  11. LANTUS [Concomitant]

REACTIONS (2)
  - BLOOD PRESSURE INADEQUATELY CONTROLLED [None]
  - OEDEMA PERIPHERAL [None]
